FAERS Safety Report 9164667 (Version 1)
Quarter: 2013Q1

REPORT INFORMATION
  Report Type: Spontaneous
  Country: GB (occurrence: None)
  Receive Date: 20130221
  Receipt Date: 20130221
  Transmission Date: 20140127
  Serious: Yes (Life-Threatening, Disabling, Other)
  Sender: FDA-Public Use
  Company Number: 2013-02576

PATIENT
  Age: 44 Year
  Sex: Male
  Weight: 74 kg

DRUGS (4)
  1. GABAPENTIN [Suspect]
     Indication: BACK PAIN
     Route: 048
     Dates: start: 20120606, end: 20120615
  2. ACETAMINOPHEN-CODEINE PHOSPHATE [Suspect]
     Indication: BACK PAIN
     Route: 048
     Dates: start: 20120412, end: 20120612
  3. AMITRIPTYLINE [Suspect]
     Indication: BACK PAIN
     Dosage: AT NIGHT
     Route: 048
     Dates: start: 20120402, end: 20120404
  4. PREGABALIN [Concomitant]

REACTIONS (10)
  - Anxiety [None]
  - Panic attack [None]
  - Drug prescribing error [None]
  - Depression [None]
  - Obsessive thoughts [None]
  - Suicidal ideation [None]
  - Personality change [None]
  - Disturbance in attention [None]
  - Personality disorder [None]
  - Drug ineffective [None]
